FAERS Safety Report 15518583 (Version 6)
Quarter: 2019Q1

REPORT INFORMATION
  Report Type: Spontaneous
  Country: US (occurrence: US)
  Receive Date: 20181017
  Receipt Date: 20190131
  Transmission Date: 20190417
  Serious: Yes (Hospitalization)
  Sender: FDA-Public Use
  Company Number: US-ACTELION-A-US2018-180326

PATIENT
  Age: 8 Year
  Sex: Male
  Weight: 22.68 kg

DRUGS (3)
  1. REMODULIN [Suspect]
     Active Substance: TREPROSTINIL
     Indication: PRODUCT USED FOR UNKNOWN INDICATION
     Route: 065
  2. REVATIO [Concomitant]
     Active Substance: SILDENAFIL CITRATE
  3. TRACLEER [Suspect]
     Active Substance: BOSENTAN
     Indication: PULMONARY ARTERIAL HYPERTENSION
     Dosage: 62.5 MG, BID
     Route: 048

REACTIONS (5)
  - Cardiac disorder [Unknown]
  - Injection site irritation [Unknown]
  - Cellulitis [Unknown]
  - Abdominal pain [Recovering/Resolving]
  - Upper respiratory tract infection [Unknown]

NARRATIVE: CASE EVENT DATE: 201810
